FAERS Safety Report 6620928-1 (Version None)
Quarter: 2010Q1

REPORT INFORMATION
  Report Type: 
  Country: None (occurrence: None)
  Receive Date: 20100309
  Receipt Date: 20100225
  Transmission Date: 20100710
  Serious: Yes (Other)
  Sender: FDA-Public Use
  Company Number: JP-PFIZER INC-2010025860

PATIENT
  Age: 78 Year
  Sex: Female
  Weight: 46.4 kg

DRUGS (5)
  1. ZOLOFT [Suspect]
     Indication: DEPRESSION
     Dosage: 50MG DAILY
     Route: 048
     Dates: start: 20100120
  2. ZOLOFT [Suspect]
     Dosage: 25 MG, 1X/DAY
     Route: 048
     Dates: start: 20100107
  3. ZOLOFT [Suspect]
     Dosage: 75MG DAILY
     Route: 048
     Dates: start: 20100128
  4. ZOLOFT [Suspect]
     Dosage: 100MG DAILY
     Route: 048
     Dates: start: 20100204
  5. ZOLOFT [Suspect]
     Dosage: 75MG DAILY
     Route: 048
     Dates: start: 20100218

REACTIONS (2)
  - DYSARTHRIA [None]
  - DYSKINESIA [None]
